FAERS Safety Report 4332671-2 (Version None)
Quarter: 2004Q1

REPORT INFORMATION
  Report Type: 
  Country: None (occurrence: None)
  Receive Date: 20040330
  Receipt Date: 20040304
  Transmission Date: 20041129
  Serious: Yes (Other)
  Sender: FDA-Public Use
  Company Number: 2004AP00575

PATIENT
  Age: 74 Year
  Sex: Male
  Weight: 81 kg

DRUGS (7)
  1. IRESSA [Suspect]
     Indication: LUNG NEOPLASM MALIGNANT
     Dosage: 250 MG DAILY PO
     Route: 048
     Dates: start: 20040113, end: 20040128
  2. SIMOVIL ^MSD^ [Concomitant]
  3. GLUCOFAGE [Concomitant]
  4. NORMITEN [Concomitant]
  5. COZAAR [Concomitant]
  6. FERROCAL [Concomitant]
  7. APIRIN ^BAYER^ [Concomitant]

REACTIONS (7)
  - COUGH [None]
  - DISEASE PROGRESSION [None]
  - DYSPNOEA [None]
  - FATIGUE [None]
  - LUNG NEOPLASM [None]
  - PLEURAL EFFUSION [None]
  - PLEURAL FIBROSIS [None]
